FAERS Safety Report 5181011-8 (Version None)
Quarter: 2006Q4

REPORT INFORMATION
  Report Type: 
  Country: None (occurrence: None)
  Receive Date: 20061220
  Receipt Date: 20061212
  Transmission Date: 20070319
  Serious: Yes (Other)
  Sender: FDA-Public Use
  Company Number: US-JNJFOC-20061001526

PATIENT
  Sex: Female
  Weight: 68.49 kg

DRUGS (7)
  1. REMICADE [Suspect]
     Route: 042
  2. REMICADE [Suspect]
     Indication: RHEUMATOID ARTHRITIS
     Route: 042
  3. FOSAMAX [Concomitant]
  4. PLAQUENIL [Concomitant]
  5. FOLIC ACID [Concomitant]
  6. AMITRIPTYLINE HCL [Concomitant]
  7. NEORAL [Concomitant]

REACTIONS (3)
  - CARDIOMYOPATHY [None]
  - SYNCOPE [None]
  - VENTRICULAR TACHYCARDIA [None]
